FAERS Safety Report 5700077-7 (Version None)
Quarter: 2008Q2

REPORT INFORMATION
  Report Type: 
  Country: None (occurrence: None)
  Receive Date: 20080410
  Receipt Date: 20080401
  Transmission Date: 20081010
  Serious: Yes (Hospitalization)
  Sender: FDA-Public Use
  Company Number: IT-ROCHE-556167

PATIENT
  Age: 20 Year
  Sex: Female

DRUGS (1)
  1. ROACCUTAN [Suspect]
     Indication: ACNE
     Route: 048
     Dates: start: 20080204, end: 20080213

REACTIONS (3)
  - BLOOD AMYLASE INCREASED [None]
  - COLITIS ULCERATIVE [None]
  - LIPASE INCREASED [None]
